FAERS Safety Report 23510389 (Version 1)
Quarter: 2024Q1

REPORT INFORMATION
  Report Type: Report from Study
  Country: US (occurrence: US)
  Receive Date: 20240211
  Receipt Date: 20240211
  Transmission Date: 20240409
  Serious: Yes (Hospitalization)
  Sender: FDA-Public Use
  Company Number: US-ABBVIE-5628529

PATIENT
  Sex: Female

DRUGS (1)
  1. HUMIRA [Suspect]
     Active Substance: ADALIMUMAB
     Indication: Product used for unknown indication
     Dosage: CITRATE FREE?FORM STRENGTH WAS 40 MILLIGRAMS
     Route: 058

REACTIONS (4)
  - Diarrhoea [Unknown]
  - Myalgia [Unknown]
  - Colitis [Unknown]
  - Arthropathy [Unknown]
